FAERS Safety Report 7125857-5 (Version None)
Quarter: 2010Q4

REPORT INFORMATION
  Report Type: 
  Country: None (occurrence: None)
  Receive Date: 20101129
  Receipt Date: 20101116
  Transmission Date: 20110411
  Serious: Yes (Hospitalization)
  Sender: FDA-Public Use
  Company Number: US-ELI_LILLY_AND_COMPANY-US201011004750

PATIENT
  Age: 78 Year
  Sex: Male

DRUGS (5)
  1. ZYPREXA [Suspect]
     Indication: SLEEP DISORDER
     Dosage: 2.5 MG, UNK
     Dates: start: 20050101
  2. PROZAC [Suspect]
     Indication: DEPRESSION
     Dosage: 10 MG, DAILY (1/D)
     Dates: start: 20050101
  3. ATIVAN [Concomitant]
     Dosage: 1 MG, DAILY (1/D)
  4. CELEXA [Concomitant]
  5. COUMADIN [Concomitant]

REACTIONS (6)
  - FALL [None]
  - HIP FRACTURE [None]
  - HYPERSENSITIVITY [None]
  - MUSCLE SPASTICITY [None]
  - OFF LABEL USE [None]
  - PANIC REACTION [None]
